FAERS Safety Report 21629357 (Version 1)
Quarter: 2022Q4

REPORT INFORMATION
  Report Type: Spontaneous
  Country: CN (occurrence: None)
  Receive Date: 20221122
  Receipt Date: 20221122
  Transmission Date: 20230113
  Serious: Yes (Hospitalization, Other)
  Sender: FDA-Public Use
  Company Number: 2022A371631

PATIENT
  Age: 21175 Day
  Sex: Male
  Weight: 38 kg

DRUGS (1)
  1. BUDESONIDE\FORMOTEROL FUMARATE [Suspect]
     Active Substance: BUDESONIDE\FORMOTEROL FUMARATE
     Indication: Respiratory disorder
     Dosage: 2 UNITS, TWO TIMES A DAY
     Route: 055
     Dates: start: 20220609, end: 20221105

REACTIONS (2)
  - Candida infection [Recovering/Resolving]
  - Dyspnoea [Unknown]

NARRATIVE: CASE EVENT DATE: 20221027
